FAERS Safety Report 4524981-0 (Version None)
Quarter: 2004Q4

REPORT INFORMATION
  Report Type: 
  Country: None (occurrence: None)
  Receive Date: 20041213
  Receipt Date: 20041202
  Transmission Date: 20050328
  Serious: Yes (Hospitalization)
  Sender: FDA-Public Use
  Company Number: US-AMGEN-US101358

PATIENT
  Sex: Male

DRUGS (1)
  1. ENBREL [Suspect]
     Indication: PSORIASIS
     Route: 058
     Dates: start: 20040401, end: 20041001

REACTIONS (6)
  - ANEURYSM [None]
  - AORTIC CALCIFICATION [None]
  - CHEST PAIN [None]
  - CORONARY ARTERY STENOSIS [None]
  - HEADACHE [None]
  - PULMONARY CALCIFICATION [None]
